FAERS Safety Report 12634983 (Version 1)
Quarter: 2016Q3

REPORT INFORMATION
  Report Type: Report from Study
  Country: CA (occurrence: CA)
  Receive Date: 20160808
  Receipt Date: 20160808
  Transmission Date: 20161109
  Serious: Yes (Hospitalization, Other)
  Sender: FDA-Public Use
  Company Number: CA-TAKEDA-2016TUS013442

PATIENT
  Age: 28 Year
  Sex: Male

DRUGS (6)
  1. MEZAVANT [Concomitant]
     Active Substance: MESALAMINE
     Dosage: 4.8 G, QD
  2. VEDOLIZUMAB [Suspect]
     Active Substance: VEDOLIZUMAB
     Indication: COLITIS ULCERATIVE
     Dosage: 300 MG, UNK
     Route: 042
     Dates: start: 20150630, end: 20160713
  3. IMURAN [Concomitant]
     Active Substance: AZATHIOPRINE
     Dosage: 150 MG, QD
  4. SALOFALK                           /00000301/ [Concomitant]
     Active Substance: MESALAMINE
     Dosage: UNK, QD
  5. VENOFER [Concomitant]
     Active Substance: IRON SUCROSE
     Dosage: UNK
     Route: 042
  6. PENTASA [Concomitant]
     Active Substance: MESALAMINE
     Dosage: UNK, QD

REACTIONS (1)
  - Colectomy [Unknown]

NARRATIVE: CASE EVENT DATE: 20160606
